FAERS Safety Report 7421774-1 (Version None)
Quarter: 2011Q2

REPORT INFORMATION
  Report Type: 
  Country: None (occurrence: None)
  Receive Date: 20110418
  Receipt Date: 20110228
  Transmission Date: 20111010
  Serious: Yes (Hospitalization)
  Sender: FDA-Public Use
  Company Number: GB-KINGPHARMUSA00001-K201100462

PATIENT
  Sex: Male

DRUGS (3)
  1. IPILIMUMAB [Suspect]
     Indication: MALIGNANT MELANOMA
     Dosage: 242 MG, CYCLICAL
     Route: 042
     Dates: start: 20101221
  2. AVINZA [Suspect]
     Indication: ARTHRALGIA
     Dosage: 90 MG, UNK
     Dates: start: 20110208
  3. AVINZA [Suspect]
     Dosage: 60 MG, UNK
     Dates: start: 20101222, end: 20110201

REACTIONS (1)
  - MENTAL STATUS CHANGES [None]
